FAERS Safety Report 8390393-5 (Version None)
Quarter: 2012Q2

REPORT INFORMATION
  Report Type: 
  Country: None (occurrence: None)
  Receive Date: 20120529
  Receipt Date: 20120516
  Transmission Date: 20120825
  Serious: Yes (Other)
  Sender: FDA-Public Use
  Company Number: CA-JNJFOC-20120514354

PATIENT
  Sex: Female

DRUGS (12)
  1. GABAPENTIN [Concomitant]
     Route: 065
  2. REMICADE [Suspect]
     Indication: PSORIASIS
     Route: 042
     Dates: start: 20120301
  3. LIPIDIL [Concomitant]
     Route: 065
  4. FENTANYL-100 [Concomitant]
     Route: 065
  5. ALL OTHER THERAPEUTICS [Concomitant]
     Route: 065
  6. ASPIRIN [Concomitant]
     Route: 065
  7. ATENOLOL [Concomitant]
     Route: 065
  8. TRAZODONE HCL [Concomitant]
     Route: 065
  9. INSULIN [Concomitant]
     Route: 065
  10. PERCOCET [Concomitant]
     Route: 065
  11. METFORMIN HCL [Concomitant]
     Route: 065
  12. SPIRONOLACTONE [Concomitant]
     Route: 065

REACTIONS (6)
  - ABNORMAL LOSS OF WEIGHT [None]
  - DEHYDRATION [None]
  - ELECTROLYTE IMBALANCE [None]
  - VOMITING [None]
  - ABDOMINAL PAIN [None]
  - NAUSEA [None]
